APPROVED DRUG PRODUCT: EXEMESTANE
Active Ingredient: EXEMESTANE
Strength: 25MG
Dosage Form/Route: TABLET;ORAL
Application: A203315 | Product #001 | TE Code: AB
Applicant: RISING PHARMA HOLDINGS INC
Approved: Mar 10, 2017 | RLD: No | RS: No | Type: RX